FAERS Safety Report 19765344 (Version 3)
Quarter: 2025Q1

REPORT INFORMATION
  Report Type: Spontaneous
  Country: US (occurrence: US)
  Receive Date: 20210831
  Receipt Date: 20250208
  Transmission Date: 20250408
  Serious: Yes (Death, Life-Threatening, Hospitalization, Other)
  Sender: AVEO PHARMACEUTICALS
  Company Number: US-AVEO ONCOLOGY-2021-AVEO-US003537

PATIENT

DRUGS (16)
  1. FOTIVDA [Suspect]
     Active Substance: TIVOZANIB HYDROCHLORIDE
     Indication: Renal cell carcinoma
     Dosage: 0.89 MG, DAILY FOR 21 DAYS, THEN OFF 7 DAYS
     Route: 048
     Dates: start: 20210611
  2. CYANOCOBALAMIN [Concomitant]
     Active Substance: CYANOCOBALAMIN
  3. DILTIAZEM [Concomitant]
     Active Substance: DILTIAZEM
  4. FIBERCON [Concomitant]
     Active Substance: CALCIUM POLYCARBOPHIL
  5. FOLIC ACID [Concomitant]
     Active Substance: FOLIC ACID
  6. HYDRALAZINE [Concomitant]
     Active Substance: HYDRALAZINE HYDROCHLORIDE
  7. LEVOTHYROXINE [Concomitant]
     Active Substance: LEVOTHYROXINE
  8. LORAZEPAM [Concomitant]
     Active Substance: LORAZEPAM
  9. LOSARTAN [Concomitant]
     Active Substance: LOSARTAN
  10. MEGESTROL [Concomitant]
     Active Substance: MEGESTROL
  11. METOPROLOL [Concomitant]
     Active Substance: METOPROLOL
  12. VITAMINS [Concomitant]
     Active Substance: VITAMINS
  13. PROCHLORPERAZINE [Concomitant]
     Active Substance: PROCHLORPERAZINE
  14. TYLENOL [Concomitant]
     Active Substance: ACETAMINOPHEN
  15. VITAMIN D3 [Concomitant]
     Active Substance: CHOLECALCIFEROL
  16. WARFARIN [Concomitant]
     Active Substance: WARFARIN

REACTIONS (6)
  - Sepsis [Unknown]
  - Confusional state [Unknown]
  - Acute respiratory failure [Fatal]
  - Renal injury [Unknown]
  - Atrial fibrillation [Unknown]
  - Urinary tract infection [Unknown]
